FAERS Safety Report 13635617 (Version 2)
Quarter: 2017Q3

REPORT INFORMATION
  Report Type: Report from Study
  Country: PA (occurrence: PA)
  Receive Date: 20170609
  Receipt Date: 20170704
  Transmission Date: 20171127
  Serious: Yes (Other)
  Sender: FDA-Public Use
  Company Number: PHHY2017PA080091

PATIENT
  Age: 57 Year
  Sex: Female
  Weight: 56.69 kg

DRUGS (2)
  1. SANDOSTATIN LAR DEPOT [Suspect]
     Active Substance: OCTREOTIDE ACETATE
     Indication: CARCINOID TUMOUR
     Dosage: 20 MG, QMO
     Route: 065
     Dates: start: 201401
  2. SANDOSTATIN LAR DEPOT [Suspect]
     Active Substance: OCTREOTIDE ACETATE
     Indication: NEUROENDOCRINE TUMOUR

REACTIONS (6)
  - Blood pressure increased [Unknown]
  - Hepatic lesion [Unknown]
  - Hepatic steatosis [Unknown]
  - Diverticulum [Unknown]
  - Malignant neoplasm progression [Unknown]
  - Asthenia [Unknown]

NARRATIVE: CASE EVENT DATE: 201702
